FAERS Safety Report 10960511 (Version 2)
Quarter: 2015Q2

REPORT INFORMATION
  Report Type: Spontaneous
  Country: JP (occurrence: None)
  Receive Date: 20150325
  Receipt Date: 20150416
  Transmission Date: 20150821
  Serious: Yes (Other)
  Sender: FDA-Public Use
  Company Number: JP-20150087

PATIENT
  Age: 61 Year
  Sex: Male

DRUGS (1)
  1. DOTAREM [Suspect]
     Active Substance: GADOTERATE MEGLUMINE
     Indication: NUCLEAR MAGNETIC RESONANCE IMAGING BRAIN
     Dosage: ABOUT 30 ML
     Route: 013

REACTIONS (3)
  - Off label use [None]
  - Arteriovenous fistula thrombosis [None]
  - Product use issue [None]

NARRATIVE: CASE EVENT DATE: 20120220
